FAERS Safety Report 20643783 (Version 1)
Quarter: 2022Q1

REPORT INFORMATION
  Report Type: Spontaneous
  Country: US (occurrence: None)
  Receive Date: 20220326
  Receipt Date: 20220326
  Transmission Date: 20220424
  Serious: Yes (Hospitalization)
  Sender: FDA-Public Use
  Company Number: None

PATIENT
  Age: 39 Year
  Sex: Female
  Weight: 72 kg

DRUGS (6)
  1. GABAPENTIN [Suspect]
     Active Substance: GABAPENTIN
     Indication: Neuralgia
     Dosage: OTHER QUANTITY : 4 CAPSULE(S);?FREQUENCY : AT BEDTIME;?
     Route: 048
     Dates: start: 20220315
  2. COREG [Concomitant]
     Active Substance: CARVEDILOL
  3. COLCHICINE [Concomitant]
     Active Substance: COLCHICINE
  4. VYVANSE [Concomitant]
     Active Substance: LISDEXAMFETAMINE DIMESYLATE
  5. EFFEXOR [Concomitant]
     Active Substance: VENLAFAXINE HYDROCHLORIDE
  6. MUCINEX [Concomitant]
     Active Substance: GUAIFENESIN

REACTIONS (7)
  - Musculoskeletal stiffness [None]
  - Musculoskeletal stiffness [None]
  - Stiff tongue [None]
  - Asthenia [None]
  - Dizziness [None]
  - Hypoaesthesia [None]
  - Muscle twitching [None]

NARRATIVE: CASE EVENT DATE: 20220324
